FAERS Safety Report 10695834 (Version 3)
Quarter: 2015Q1

REPORT INFORMATION
  Report Type: Spontaneous
  Country: US (occurrence: US)
  Receive Date: 20150107
  Receipt Date: 20150130
  Transmission Date: 20150721
  Serious: Yes (Other)
  Sender: FDA-Public Use
  Company Number: US-UNITED THERAPEUTICS-UNT-2014-011657

PATIENT
  Sex: Female
  Weight: 52.15 kg

DRUGS (3)
  1. REMODULIN [Suspect]
     Active Substance: TREPROSTINIL
     Indication: PULMONARY ARTERIAL HYPERTENSION
     Dosage: 0.045 ?G/KG, CONTINUING
     Route: 058
     Dates: start: 20110825
  2. ADCIRCA [Concomitant]
     Active Substance: TADALAFIL
     Indication: PRODUCT USED FOR UNKNOWN INDICATION
  3. REMODULIN [Suspect]
     Active Substance: TREPROSTINIL
     Dosage: 0.051 ?G/KG/MIN, CONTINUING
     Route: 058
     Dates: start: 20110826

REACTIONS (13)
  - Drug hypersensitivity [Unknown]
  - Infusion site pain [Recovered/Resolved]
  - Infusion site discomfort [Recovered/Resolved]
  - Scar [Recovered/Resolved]
  - Infusion site reaction [Recovered/Resolved]
  - Infusion site infection [Recovered/Resolved]
  - Infusion site oedema [Recovered/Resolved]
  - Infusion site erythema [Recovered/Resolved]
  - Infusion site pustule [Recovered/Resolved]
  - Treatment noncompliance [Recovered/Resolved]
  - Device dislocation [Recovered/Resolved]
  - Infusion site nodule [Recovered/Resolved]
  - Therapy cessation [Recovered/Resolved]

NARRATIVE: CASE EVENT DATE: 2014
